FAERS Safety Report 25797688 (Version 3)
Quarter: 2025Q3

REPORT INFORMATION
  Report Type: Spontaneous
  Country: US (occurrence: US)
  Receive Date: 20250912
  Receipt Date: 20250929
  Transmission Date: 20251021
  Serious: Yes (unspecified)
  Sender: RC OUTSOURCING, LLC
  Company Number: US-RC Outsourcing, LLC-2184418

PATIENT
  Age: 87 Year
  Sex: Female

DRUGS (1)
  1. BEVACIZUMAB [Suspect]
     Active Substance: BEVACIZUMAB

REACTIONS (1)
  - Endophthalmitis [Not Recovered/Not Resolved]
